FAERS Safety Report 7132281-8 (Version None)
Quarter: 2010Q4

REPORT INFORMATION
  Report Type: 
  Country: None (occurrence: None)
  Receive Date: 20101202
  Receipt Date: 20101119
  Transmission Date: 20110411
  Serious: Yes (Other)
  Sender: FDA-Public Use
  Company Number: PHHY2010US75455

PATIENT
  Sex: Female

DRUGS (3)
  1. EXJADE [Suspect]
     Indication: MYELODYSPLASTIC SYNDROME
     Dosage: 1500 MG, DAILY
     Route: 048
     Dates: start: 20101104
  2. BLOOD TRANSFUSION, AUXILIARY PRODUCTS [Concomitant]
     Dosage: 3 UNITS OF 3 WEEKS
  3. RED BLOOD CELLS [Concomitant]
     Dosage: 3 UNITS EVERY 3 WEEK

REACTIONS (14)
  - ABDOMINAL PAIN UPPER [None]
  - ABNORMAL SENSATION IN EYE [None]
  - ARTHRALGIA [None]
  - BALANCE DISORDER [None]
  - DIZZINESS [None]
  - FATIGUE [None]
  - LACRIMATION INCREASED [None]
  - MUSCULOSKELETAL PAIN [None]
  - NAUSEA [None]
  - OEDEMA [None]
  - OEDEMA PERIPHERAL [None]
  - VERTIGO [None]
  - VISION BLURRED [None]
  - VISUAL IMPAIRMENT [None]
